FAERS Safety Report 4633558-8 (Version None)
Quarter: 2005Q2

REPORT INFORMATION
  Report Type: 
  Country: None (occurrence: None)
  Receive Date: 20050331
  Receipt Date: 20050131
  Transmission Date: 20051028
  Serious: Yes (Other)
  Sender: FDA-Public Use
  Company Number: 20050131

PATIENT
  Sex: Female

DRUGS (1)
  1. ALINIA [Suspect]
     Indication: VAGINITIS BACTERIAL
     Dosage: 500 MG X 1, ROUTE 047;  1 DOSE
     Dates: start: 20050129

REACTIONS (2)
  - RHINITIS [None]
  - SALIVARY HYPERSECRETION [None]
